FAERS Safety Report 3834678 (Version 4)
Quarter: 2013Q1

REPORT INFORMATION
  Report Type: Spontaneous
  Country: IE (occurrence: IE)
  Receive Date: 20020822
  Receipt Date: 20130311
  Transmission Date: 20140127
  Serious: Yes (Hospitalization)
  Sender: FDA-Public Use
  Company Number: PHFR2002IE02533

PATIENT
  Age: 44 Year
  Sex: Male

DRUGS (6)
  1. CLOZARIL [Suspect]
     Dosage: 50 MG, PER DAY
     Route: 048
  2. CLOZARIL [Suspect]
     Dosage: 300 MG, PER DAY
     Dates: end: 20020817
  3. LOFEPRAMINE [Concomitant]
  4. VENLAFAXINE [Concomitant]
  5. CITALOPRAM [Concomitant]
  6. CLOPIXOL [Concomitant]

REACTIONS (4)
  - Pseudophaeochromocytoma [Recovered/Resolved]
  - Blood pressure increased [Recovered/Resolved]
  - Tachycardia [Recovered/Resolved]
  - Norepinephrine increased [Recovered/Resolved]
